FAERS Safety Report 16787521 (Version 1)
Quarter: 2019Q3

REPORT INFORMATION
  Report Type: Spontaneous
  Country: FR (occurrence: FR)
  Receive Date: 20190909
  Receipt Date: 20190909
  Transmission Date: 20191005
  Serious: Yes (Hospitalization)
  Sender: FDA-Public Use
  Company Number: FR-PFIZER INC-2019383851

PATIENT
  Sex: Male

DRUGS (1)
  1. SIROLIMUS. [Suspect]
     Active Substance: SIROLIMUS
     Indication: INTESTINAL ANGIOMA
     Dosage: 1 MG/M2, 1X/DAY
     Route: 048
     Dates: start: 20180214

REACTIONS (3)
  - Abdominal adhesions [Not Recovered/Not Resolved]
  - Product use in unapproved indication [Not Recovered/Not Resolved]
  - Volvulus [Recovered/Resolved]

NARRATIVE: CASE EVENT DATE: 20180214
